FAERS Safety Report 8489826-5 (Version None)
Quarter: 2012Q3

REPORT INFORMATION
  Report Type: 
  Country: None (occurrence: None)
  Receive Date: 20120705
  Receipt Date: 20120625
  Transmission Date: 20120928
  Serious: Yes (Death)
  Sender: FDA-Public Use
  Company Number: DK-ACTELION-A-CH2012-67828

PATIENT
  Sex: Male

DRUGS (3)
  1. SILDENAFIL [Concomitant]
  2. OXYGEN [Concomitant]
  3. TRACLEER [Suspect]
     Indication: PULMONARY ARTERIAL HYPERTENSION
     Dosage: UNK , UNK
     Route: 048
     Dates: start: 20120101, end: 20120519

REACTIONS (4)
  - RIGHT VENTRICULAR FAILURE [None]
  - RESPIRATORY TRACT INFECTION [None]
  - CONDITION AGGRAVATED [None]
  - PULMONARY ARTERIAL HYPERTENSION [None]
